FAERS Safety Report 13778147 (Version 1)
Quarter: 2017Q3

REPORT INFORMATION
  Report Type: Spontaneous
  Country: PT (occurrence: PT)
  Receive Date: 20170721
  Receipt Date: 20170721
  Transmission Date: 20171127
  Serious: Yes (Death, Hospitalization)
  Sender: FDA-Public Use
  Company Number: PT-SA-2017SA130938

PATIENT
  Age: 89 Year
  Sex: Female

DRUGS (5)
  1. INDAPAMIDE. [Suspect]
     Active Substance: INDAPAMIDE
     Indication: HYPERTENSION
     Route: 065
  2. PREDNISOLONE. [Suspect]
     Active Substance: PREDNISOLONE
     Indication: ANTI-NEUTROPHIL CYTOPLASMIC ANTIBODY POSITIVE VASCULITIS
     Route: 065
  3. CYCLOPHOSPHAMIDE. [Suspect]
     Active Substance: CYCLOPHOSPHAMIDE
     Indication: ANTI-NEUTROPHIL CYTOPLASMIC ANTIBODY POSITIVE VASCULITIS
     Route: 065
  4. CYCLOPHOSPHAMIDE. [Suspect]
     Active Substance: CYCLOPHOSPHAMIDE
     Indication: NEPHRITIS
     Route: 065
  5. PREDNISOLONE. [Suspect]
     Active Substance: PREDNISOLONE
     Indication: NEPHRITIS
     Route: 065

REACTIONS (11)
  - Asthenia [Recovered/Resolved]
  - Urosepsis [Fatal]
  - Hyponatraemia [Recovered/Resolved]
  - Pneumonia [Fatal]
  - Pancytopenia [Fatal]
  - Oesophageal candidiasis [Fatal]
  - Oedema peripheral [Recovered/Resolved]
  - Neutropenia [Fatal]
  - Confusional state [Recovered/Resolved]
  - Drug ineffective [Unknown]
  - Disorientation [Recovered/Resolved]
